FAERS Safety Report 6940230-8 (Version None)
Quarter: 2010Q3

REPORT INFORMATION
  Report Type: 
  Country: None (occurrence: None)
  Receive Date: 20100825
  Receipt Date: 20100816
  Transmission Date: 20110219
  Serious: Yes (Hospitalization, Other)
  Sender: FDA-Public Use
  Company Number: US-ELI_LILLY_AND_COMPANY-US201008004323

PATIENT
  Sex: Female
  Weight: 70.295 kg

DRUGS (7)
  1. BYETTA [Suspect]
     Indication: TYPE 2 DIABETES MELLITUS
     Dosage: 10 UG, AS NEEDED
     Route: 058
  2. ACTOPLUS MET [Concomitant]
     Indication: TYPE 2 DIABETES MELLITUS
  3. LANTUS                             /01483501/ [Concomitant]
     Indication: DIABETES MELLITUS
  4. LISINOPRIL [Concomitant]
     Indication: HYPERTENSION
  5. CLONAZEPAM [Concomitant]
     Indication: STRESS
     Dosage: UNK, AS NEEDED
  6. ESTRADERM [Concomitant]
  7. PLAVIX [Concomitant]

REACTIONS (10)
  - BLOOD GLUCOSE INCREASED [None]
  - BLOOD PRESSURE INCREASED [None]
  - CAROTID ARTERY DISEASE [None]
  - DRUG DOSE OMISSION [None]
  - DRUG PRESCRIBING ERROR [None]
  - LETHARGY [None]
  - NAUSEA [None]
  - OFF LABEL USE [None]
  - STENT PLACEMENT [None]
  - STRESS [None]
